FAERS Safety Report 6367421-1 (Version None)
Quarter: 2009Q3

REPORT INFORMATION
  Report Type: 
  Country: None (occurrence: None)
  Receive Date: 20090921
  Receipt Date: 20090914
  Transmission Date: 20100115
  Serious: Yes (Hospitalization)
  Sender: FDA-Public Use
  Company Number: A0808092A

PATIENT
  Sex: Female
  Weight: 67 kg

DRUGS (11)
  1. SERETIDE [Suspect]
     Indication: CHRONIC OBSTRUCTIVE PULMONARY DISEASE
     Dosage: 1PUFF TWICE PER DAY
     Route: 055
     Dates: start: 20040101
  2. LORAZEPAM [Concomitant]
     Dosage: 1MG TWICE PER DAY
     Route: 048
     Dates: start: 20080901
  3. ATENSINA [Concomitant]
     Dosage: .2MG THREE TIMES PER DAY
     Route: 048
     Dates: start: 20070101
  4. DILTIAZEM [Concomitant]
     Dosage: 60MG THREE TIMES PER DAY
     Route: 048
     Dates: start: 20070101
  5. SLOW-K [Concomitant]
     Dosage: 600MG TWICE PER DAY
     Route: 048
     Dates: start: 20040101
  6. SIMVASTATIN [Concomitant]
     Dosage: 40MG PER DAY
     Route: 048
     Dates: start: 20040101
  7. TICLOPIDINE HCL [Concomitant]
     Dosage: 250MG PER DAY
     Route: 048
     Dates: start: 20040101
  8. DIAMICRON [Concomitant]
     Dosage: 30MG PER DAY
     Route: 048
     Dates: start: 20030101
  9. EUTHYROX [Concomitant]
     Dosage: 50MG PER DAY
     Route: 048
  10. CETIRIZINE HCL [Concomitant]
     Dosage: 10MG PER DAY
     Route: 048
  11. ISORDIL [Concomitant]
     Indication: CHEST PAIN
     Dosage: 5MG AS REQUIRED
     Route: 048

REACTIONS (5)
  - CHEST PAIN [None]
  - DRY THROAT [None]
  - DYSPNOEA [None]
  - TACHYCARDIA [None]
  - TREMOR [None]
